FAERS Safety Report 8193567-1 (Version None)
Quarter: 2012Q1

REPORT INFORMATION
  Report Type: 
  Country: None (occurrence: None)
  Receive Date: 20120308
  Receipt Date: 20120224
  Transmission Date: 20120608
  Serious: Yes (Death, Other)
  Sender: FDA-Public Use
  Company Number: US-ROCHE-708218

PATIENT
  Sex: Female

DRUGS (5)
  1. CYCLOPHOSPHAMIDE [Suspect]
     Indication: BREAST CANCER
     Route: 042
  2. HERCEPTIN [Suspect]
     Indication: BREAST CANCER
     Dosage: LOADING DOSE; OVER 90 MINUTES, DAY 1 CYCLE 1
     Route: 042
  3. DOCETAXEL [Suspect]
     Indication: BREAST CANCER
     Route: 042
  4. HERCEPTIN [Suspect]
     Dosage: ON DAY 1, 8 AND 15
     Route: 042
  5. HERCEPTIN [Suspect]
     Route: 042

REACTIONS (6)
  - NEUTROPENIA [None]
  - FEBRILE NEUTROPENIA [None]
  - CARDIAC DISORDER [None]
  - ASPIRATION [None]
  - RESPIRATORY DISTRESS [None]
  - EJECTION FRACTION DECREASED [None]
